FAERS Safety Report 11363618 (Version 2)
Quarter: 2015Q3

REPORT INFORMATION
  Report Type: Spontaneous
  Country: JP (occurrence: JP)
  Receive Date: 20150811
  Receipt Date: 20150811
  Transmission Date: 20151125
  Serious: Yes (Hospitalization, Other)
  Sender: FDA-Public Use
  Company Number: PHJP2015JP013132

PATIENT
  Age: 46 Year
  Sex: Female
  Weight: 48.5 kg

DRUGS (2)
  1. DICLOFENAC [Suspect]
     Active Substance: DICLOFENAC
     Indication: PRODUCT USED FOR UNKNOWN INDICATION
     Dosage: 450 MG, ONCE/SINGLE
     Route: 048
     Dates: start: 20150331, end: 20150331
  2. LYRICA [Suspect]
     Active Substance: PREGABALIN
     Indication: PRODUCT USED FOR UNKNOWN INDICATION
     Dosage: 3525 MG, ONCE/SINGLE
     Route: 048
     Dates: start: 20150331, end: 20150331

REACTIONS (7)
  - Seizure [Recovered/Resolved]
  - Lethargy [Unknown]
  - Suicide attempt [Unknown]
  - Intentional overdose [Unknown]
  - Pyrexia [Recovered/Resolved]
  - Altered state of consciousness [Recovered/Resolved]
  - Toxicity to various agents [Recovered/Resolved]

NARRATIVE: CASE EVENT DATE: 20150331
